FAERS Safety Report 5004826-5 (Version None)
Quarter: 2006Q2

REPORT INFORMATION
  Report Type: 
  Country: None (occurrence: None)
  Receive Date: 20060517
  Receipt Date: 20050308
  Transmission Date: 20061013
  Serious: Yes (Hospitalization, Disabling)
  Sender: FDA-Public Use
  Company Number: US-MERCK-0503USA01384

PATIENT
  Age: 65 Year
  Sex: Female
  Weight: 57 kg

DRUGS (26)
  1. VIOXX [Suspect]
     Indication: OSTEOARTHRITIS
     Route: 048
     Dates: start: 20020718, end: 20030319
  2. VIOXX [Suspect]
     Route: 048
     Dates: start: 20030320, end: 20040228
  3. VIOXX [Suspect]
     Route: 048
     Dates: start: 20040301, end: 20040929
  4. VIOXX [Suspect]
     Indication: SPINAL COLUMN STENOSIS
     Route: 048
     Dates: start: 20020718, end: 20030319
  5. VIOXX [Suspect]
     Route: 048
     Dates: start: 20030320, end: 20040228
  6. VIOXX [Suspect]
     Route: 048
     Dates: start: 20040301, end: 20040929
  7. LASIX [Concomitant]
     Indication: HYPERTENSION
     Route: 065
     Dates: start: 19940101, end: 20040901
  8. LASIX [Concomitant]
     Route: 065
     Dates: start: 20040901
  9. LASIX [Concomitant]
     Indication: OEDEMA PERIPHERAL
     Route: 065
     Dates: start: 19940101, end: 20040901
  10. LASIX [Concomitant]
     Route: 065
     Dates: start: 20040901
  11. K-DUR 10 [Concomitant]
     Route: 065
  12. ZESTRIL [Concomitant]
     Route: 065
     Dates: start: 19940101
  13. PREMARIN [Concomitant]
     Route: 065
  14. SYNTHROID [Concomitant]
     Route: 065
  15. LANOXIN [Concomitant]
     Route: 065
     Dates: start: 19940101
  16. RYTHMOL [Concomitant]
     Route: 065
  17. NEXIUM [Concomitant]
     Route: 065
  18. ZOLOFT [Concomitant]
     Indication: DEPRESSION
     Route: 065
  19. FLEXERIL [Concomitant]
     Route: 065
  20. DARVON [Concomitant]
     Route: 065
  21. VITAMINS (UNSPECIFIED) [Concomitant]
     Route: 065
  22. BIOTIN [Concomitant]
     Route: 065
  23. FOLIC ACID [Concomitant]
     Route: 065
  24. TYLENOL (CAPLET) [Concomitant]
     Route: 065
  25. ATROVENT [Concomitant]
     Route: 065
  26. PREVACID [Concomitant]
     Route: 065

REACTIONS (50)
  - ACTIVATED PARTIAL THROMBOPLASTIN TIME PROLONGED [None]
  - ACUTE MYOCARDIAL INFARCTION [None]
  - ALANINE AMINOTRANSFERASE INCREASED [None]
  - AORTIC VALVE SCLEROSIS [None]
  - APHASIA [None]
  - ARTERIOSCLEROSIS [None]
  - ASPARTATE AMINOTRANSFERASE INCREASED [None]
  - ASTHENIA [None]
  - ATELECTASIS [None]
  - ATRIAL FIBRILLATION [None]
  - BLOOD ALBUMIN DECREASED [None]
  - BLOOD CREATININE INCREASED [None]
  - BLOOD GLUCOSE INCREASED [None]
  - BLOOD PRESSURE SYSTOLIC DECREASED [None]
  - BLOOD SODIUM DECREASED [None]
  - CARDIAC FAILURE CONGESTIVE [None]
  - CAROTID ARTERY STENOSIS [None]
  - CAROTID ARTERY THROMBOSIS [None]
  - CAROTID BRUIT [None]
  - CEREBROVASCULAR ACCIDENT [None]
  - CEREBROVASCULAR DISORDER [None]
  - CERVICAL MYELOPATHY [None]
  - CERVICAL SPINAL STENOSIS [None]
  - CONFUSIONAL STATE [None]
  - DEPRESSION [None]
  - GASTRIC DISORDER [None]
  - HAEMATOCRIT DECREASED [None]
  - HAEMORRHAGE [None]
  - HERPES SIMPLEX [None]
  - HERPES ZOSTER [None]
  - HYPERTENSION [None]
  - HYPOPERFUSION [None]
  - HYPOTENSION [None]
  - HYPOXIA [None]
  - INTERVERTEBRAL DISC DEGENERATION [None]
  - JOINT SURGERY [None]
  - KERATITIS [None]
  - MENTAL STATUS CHANGES [None]
  - MITRAL VALVE CALCIFICATION [None]
  - MYELOPATHY [None]
  - MYOCARDIAL ISCHAEMIA [None]
  - OSTEOARTHRITIS [None]
  - OXYGEN SATURATION DECREASED [None]
  - PNEUMONIA [None]
  - PROTEIN TOTAL DECREASED [None]
  - PYREXIA [None]
  - ROTATOR CUFF SYNDROME [None]
  - TACHYCARDIA [None]
  - THROMBOSIS [None]
  - VENTRICULAR DYSFUNCTION [None]
